FAERS Safety Report 10077059 (Version 3)
Quarter: 2014Q2

REPORT INFORMATION
  Report Type: Spontaneous
  Country: US (occurrence: US)
  Receive Date: 20140414
  Receipt Date: 20140506
  Transmission Date: 20141212
  Serious: Yes (Hospitalization, Other)
  Sender: FDA-Public Use
  Company Number: US-PFIZER INC-2014104120

PATIENT
  Age: 54 Year
  Sex: Male
  Weight: 116.1 kg

DRUGS (14)
  1. LYRICA [Suspect]
     Indication: NEUROPATHY PERIPHERAL
     Dosage: 75 MG, 3X/DAY
     Route: 048
     Dates: start: 2011
  2. LYRICA [Suspect]
     Indication: CARPAL TUNNEL SYNDROME
  3. LYRICA [Suspect]
     Indication: TRIGEMINAL NEURALGIA
  4. LYRICA [Suspect]
     Indication: SCIATICA
  5. LYRICA [Suspect]
     Indication: NERVE INJURY
  6. ATENOLOL [Concomitant]
     Dosage: 50 MG, 1X/DAY
  7. GEMFIBROZIL [Concomitant]
     Dosage: 600 MG, 2X/DAY
  8. ASPIRIN [Concomitant]
     Dosage: 80 MG, 1X/DAY
  9. TRAMADOL [Concomitant]
     Dosage: 50 MG, 2X/DAY
  10. ATACAND [Concomitant]
     Dosage: 12 MG, 1X/DAY
  11. NEXIUM [Concomitant]
     Dosage: 40 MG, 2X/DAY
  12. SUCRALFATE [Concomitant]
     Dosage: 1 G, AS NEEDED
  13. DULERA [Concomitant]
     Dosage: 200 MG, 2X/DAY
  14. VITAMIN B12 [Concomitant]
     Dosage: UNK, 2X/MONTH

REACTIONS (2)
  - Lung disorder [Unknown]
  - Lung disorder [Unknown]
